FAERS Safety Report 24545559 (Version 1)
Quarter: 2024Q4

REPORT INFORMATION
  Report Type: Spontaneous
  Country: US (occurrence: None)
  Receive Date: 20241023
  Receipt Date: 20241023
  Transmission Date: 20250114
  Serious: No
  Sender: Public
  Company Number: None

PATIENT
  Sex: Male

DRUGS (2)
  1. TRADJENTA [Suspect]
     Active Substance: LINAGLIPTIN
  2. ALOGLIPTIN [Suspect]
     Active Substance: ALOGLIPTIN

REACTIONS (4)
  - Product dispensing error [None]
  - Product administration error [None]
  - Product prescribing error [None]
  - Product communication issue [None]
